FAERS Safety Report 16777321 (Version 1)
Quarter: 2019Q3

REPORT INFORMATION
  Report Type: Spontaneous
  Country: CA (occurrence: CA)
  Receive Date: 20190905
  Receipt Date: 20190905
  Transmission Date: 20191005
  Serious: Yes (Hospitalization)
  Sender: FDA-Public Use
  Company Number: CA-TEVA-2019-CA-1102225

PATIENT
  Age: 14 Year
  Sex: Female
  Weight: 29 kg

DRUGS (6)
  1. BACLOFEN. [Concomitant]
     Active Substance: BACLOFEN
  2. DOXYCYCLINE. [Concomitant]
     Active Substance: DOXYCYCLINE
  3. DOMPERIDONE [Concomitant]
     Active Substance: DOMPERIDONE
  4. TRIMETHOPRIM - SULFAMETHOXAZOLE [Suspect]
     Active Substance: SULFAMETHOXAZOLE\TRIMETHOPRIM
     Indication: OSTEOMYELITIS
     Route: 048
  5. CIPRO [Concomitant]
     Active Substance: CIPROFLOXACIN HYDROCHLORIDE
  6. CEFTRIAXONE FOR INJECTION USP [Concomitant]
     Active Substance: CEFTRIAXONE

REACTIONS (5)
  - Respiratory distress [Recovered/Resolved]
  - Transfusion [Recovered/Resolved]
  - Hepatosplenomegaly [Recovered/Resolved]
  - Pancytopenia [Recovered/Resolved]
  - Pyrexia [Recovered/Resolved]
